FAERS Safety Report 23213399 (Version 1)
Quarter: 2023Q4

REPORT INFORMATION
  Report Type: Spontaneous
  Country: US (occurrence: US)
  Receive Date: 20231121
  Receipt Date: 20231121
  Transmission Date: 20240109
  Serious: Yes (Hospitalization, Other)
  Sender: FDA-Public Use
  Company Number: US-PFIZER INC-PV202300187357

PATIENT
  Age: 20 Day

DRUGS (4)
  1. METHIMAZOLE [Suspect]
     Active Substance: METHIMAZOLE
     Indication: Graves^ disease
     Dosage: 0.5 MG/KG, DAILY
     Route: 048
  2. METHIMAZOLE [Suspect]
     Active Substance: METHIMAZOLE
     Dosage: 0.25 MG/KG, DAILY, 3 DAYS LATER
     Route: 048
  3. METHIMAZOLE [Suspect]
     Active Substance: METHIMAZOLE
     Dosage: UNK, ALTERNATE DAY, DOSING
     Route: 048
  4. PROPRANOLOL [Concomitant]
     Active Substance: PROPRANOLOL HYDROCHLORIDE
     Dosage: 2 MG/KG, DAILY

REACTIONS (2)
  - Neutropenia neonatal [Not Recovered/Not Resolved]
  - Off label use [Unknown]
